FAERS Safety Report 15353586 (Version 2)
Quarter: 2018Q4

REPORT INFORMATION
  Report Type: Spontaneous
  Country: IE (occurrence: IE)
  Receive Date: 20180905
  Receipt Date: 20181005
  Transmission Date: 20190204
  Serious: Yes (Death)
  Sender: FDA-Public Use
  Company Number: IE-SAOL THERAPEUTICS-2018SAO00973

PATIENT
  Age: 45 Year
  Sex: Female

DRUGS (1)
  1. LIORESAL [Suspect]
     Active Substance: BACLOFEN
     Dosage: 145.2 ?G/ML, \DAY

REACTIONS (3)
  - Device failure [Recovered/Resolved]
  - Pneumonia aspiration [Fatal]
  - Cardiac arrest [Fatal]

NARRATIVE: CASE EVENT DATE: 20180403
